FAERS Safety Report 4464563-2 (Version None)
Quarter: 2004Q3

REPORT INFORMATION
  Report Type: 
  Country: None (occurrence: None)
  Receive Date: 20040929
  Receipt Date: 20031212
  Transmission Date: 20050211
  Serious: Yes (Hospitalization, Other)
  Sender: FDA-Public Use
  Company Number: F01200301458

PATIENT
  Age: 76 Year
  Sex: Male

DRUGS (13)
  1. OXALIPLATIN- SOLUTION- 130 MG/M2 [Suspect]
     Indication: COLON CANCER
     Dosage: 130 MG/M2 Q3W - INTRAVENOUS NOS
     Route: 042
     Dates: start: 20031202, end: 20031202
  2. CAPECITABINE - TABLET - 1000 MG/M2 [Suspect]
     Dosage: 1800 MG (1000 MG/M2 TWICE A DAY PER ORAL  FROM D1 TO D15)- ORAL
     Route: 048
     Dates: start: 20031202, end: 20031202
  3. DIGOXIN [Concomitant]
  4. SOTALOL HCL [Concomitant]
  5. AMLODIPINE BESYLATE [Concomitant]
  6. RANITIDINE [Concomitant]
  7. FINASTERIDE [Concomitant]
  8. VALDECOXIB [Concomitant]
  9. PRAVASTATIN SODIUM [Concomitant]
  10. FUROSEMIDE [Concomitant]
  11. CLONIDINE HCL [Concomitant]
  12. ACETYLSALICYLIC ACID [Concomitant]
  13. PROMETHAZINE HCL [Concomitant]

REACTIONS (4)
  - ASTHENIA [None]
  - DEHYDRATION [None]
  - HYPOKALAEMIA [None]
  - RENAL FAILURE [None]
